FAERS Safety Report 23290348 (Version 1)
Quarter: 2023Q4

REPORT INFORMATION
  Report Type: Report from Study
  Country: US (occurrence: US)
  Receive Date: 20231213
  Receipt Date: 20231213
  Transmission Date: 20240110
  Serious: Yes (Other)
  Sender: FDA-Public Use
  Company Number: US-CBL-002341

PATIENT
  Sex: Male

DRUGS (1)
  1. TACROLIMUS [Suspect]
     Active Substance: TACROLIMUS
     Indication: Prophylaxis against graft versus host disease
     Route: 065

REACTIONS (6)
  - Pericardial effusion [Unknown]
  - Acute graft versus host disease [Unknown]
  - Product use in unapproved indication [Unknown]
  - Cardiac tamponade [Unknown]
  - Renal impairment [Recovering/Resolving]
  - Thrombotic microangiopathy [Recovered/Resolved]
